FAERS Safety Report 5402716-7 (Version None)
Quarter: 2007Q3

REPORT INFORMATION
  Report Type: 
  Country: None (occurrence: None)
  Receive Date: 20070801
  Receipt Date: 20070724
  Transmission Date: 20080115
  Serious: Yes (Life-Threatening, Hospitalization)
  Sender: FDA-Public Use
  Company Number: B0481581A

PATIENT
  Age: 71 Year
  Sex: Female

DRUGS (1)
  1. COROPRES [Suspect]
     Indication: ESSENTIAL HYPERTENSION
     Dosage: 6.25MG PER DAY
     Route: 048
     Dates: start: 20060619, end: 20060626

REACTIONS (2)
  - CARDIAC FAILURE [None]
  - DYSPNOEA [None]
